FAERS Safety Report 7379996-4 (Version None)
Quarter: 2011Q1

REPORT INFORMATION
  Report Type: 
  Country: None (occurrence: None)
  Receive Date: 20110329
  Receipt Date: 20110318
  Transmission Date: 20110831
  Serious: Yes (Other)
  Sender: FDA-Public Use
  Company Number: RO-JNJFOC-20110310091

PATIENT
  Sex: Male
  Weight: 71 kg

DRUGS (1)
  1. NICORETTE FRESHMINT 4MG GUM [Suspect]
     Indication: NICOTINE DEPENDENCE
     Dosage: FIVE TO SIX PIECES A DAY
     Route: 048

REACTIONS (5)
  - ANOSMIA [None]
  - TEMPERATURE REGULATION DISORDER [None]
  - AGEUSIA [None]
  - THERAPEUTIC RESPONSE UNEXPECTED [None]
  - PAIN THRESHOLD DECREASED [None]
